FAERS Safety Report 6455549-7 (Version None)
Quarter: 2009Q4

REPORT INFORMATION
  Report Type: 
  Country: None (occurrence: None)
  Receive Date: 20091125
  Receipt Date: 20091007
  Transmission Date: 20100525
  Serious: No
  Sender: FDA-Public Use
  Company Number: US-ABBOTT-09P-163-0598291-00

PATIENT
  Sex: Male
  Weight: 106.69 kg

DRUGS (8)
  1. SIMCOR [Suspect]
     Indication: BLOOD CHOLESTEROL INCREASED
     Dosage: 500/20 MG
     Dates: start: 20090903, end: 20090915
  2. SIMCOR [Suspect]
     Dates: start: 20090901
  3. METFORMIN [Concomitant]
     Indication: DIABETES MELLITUS
  4. COREG [Concomitant]
     Indication: BLOOD PRESSURE
  5. GLIMEPIRIDE [Concomitant]
     Indication: DIABETES MELLITUS
  6. ASPIRIN [Concomitant]
     Indication: DRUG USE FOR UNKNOWN INDICATION
  7. M.V.I. [Concomitant]
     Indication: DRUG USE FOR UNKNOWN INDICATION
  8. LISINOPRIL [Concomitant]
     Indication: DRUG USE FOR UNKNOWN INDICATION

REACTIONS (4)
  - BLOOD GLUCOSE INCREASED [None]
  - LIMB DEFORMITY [None]
  - MUSCULAR WEAKNESS [None]
  - PAIN IN EXTREMITY [None]
